FAERS Safety Report 4733304-3 (Version None)
Quarter: 2005Q3

REPORT INFORMATION
  Report Type: 
  Country: None (occurrence: None)
  Receive Date: 20050725
  Receipt Date: 20041110
  Transmission Date: 20060218
  Serious: Yes (Death, Other)
  Sender: FDA-Public Use
  Company Number: USA-2004-0017600

PATIENT
  Age: 23 Year
  Sex: Male

DRUGS (7)
  1. MORPHINE SULFATE [Suspect]
  2. HYDROMORPHONE HCL [Suspect]
  3. DIAZEPAM [Suspect]
  4. METHADONE (METHADONE) [Suspect]
  5. OXAZEPAM [Suspect]
  6. TEMAZEPAM [Suspect]
  7. CANNABINOIDS [Suspect]

REACTIONS (2)
  - OVERDOSE [None]
  - POLYSUBSTANCE ABUSE [None]
